FAERS Safety Report 20750194 (Version 1)
Quarter: 2022Q2

REPORT INFORMATION
  Report Type: Spontaneous
  Country: CN (occurrence: CN)
  Receive Date: 20220426
  Receipt Date: 20220426
  Transmission Date: 20220721
  Serious: Yes (Other)
  Sender: FDA-Public Use
  Company Number: CN-009507513-2204CHN006913

PATIENT
  Age: 88 Year
  Sex: Female
  Weight: 50 kg

DRUGS (4)
  1. CILASTATIN SODIUM\IMIPENEM [Suspect]
     Active Substance: CILASTATIN SODIUM\IMIPENEM
     Indication: Peritonitis
     Dosage: 1 G, FREQUENCY: Q8H, MICRO-PUMP (16ML/H) PHARMACEUTICAL FORM: POWDER FOR INJECTION
     Route: 041
     Dates: start: 20220409, end: 20220411
  2. CILASTATIN SODIUM\IMIPENEM [Suspect]
     Active Substance: CILASTATIN SODIUM\IMIPENEM
     Dosage: 1 G, FREQUENCY: Q8H, PHARMACEUTICAL FORM: POWDER FOR INJECTION
     Route: 041
     Dates: start: 20220412
  3. SODIUM CHLORIDE [Concomitant]
     Active Substance: SODIUM CHLORIDE
     Indication: Medication dilution
     Dosage: 50 ML, FREQUENCY: Q8H, MICRO-PUMP (16ML/H)
     Route: 041
     Dates: start: 20220409, end: 20220411
  4. SODIUM CHLORIDE [Concomitant]
     Active Substance: SODIUM CHLORIDE
     Dosage: 100 ML, FREQUENCY: Q8H
     Route: 041
     Dates: start: 20220412

REACTIONS (2)
  - Depressed level of consciousness [Recovered/Resolved]
  - Hallucination [Recovered/Resolved]

NARRATIVE: CASE EVENT DATE: 20220411
